FAERS Safety Report 4400954-3 (Version None)
Quarter: 2004Q3

REPORT INFORMATION
  Report Type: 
  Country: None (occurrence: None)
  Receive Date: 20040907
  Receipt Date: 20030822
  Transmission Date: 20050211
  Serious: No
  Sender: FDA-Public Use
  Company Number: US-BRISTOL-MYERS SQUIBB COMPANY-12364584

PATIENT
  Age: 78 Year
  Sex: Female
  Weight: 91 kg

DRUGS (8)
  1. COUMADIN [Suspect]
     Indication: THROMBOSIS
     Route: 048
  2. COUMADIN [Suspect]
     Indication: CEREBROVASCULAR ACCIDENT
     Route: 048
  3. WARFARIN SODIUM [Suspect]
  4. CAPOTEN [Concomitant]
  5. VERAPAMIL [Concomitant]
  6. SLO-BID [Concomitant]
  7. NEXIUM [Concomitant]
  8. LEVSIN PB [Concomitant]

REACTIONS (1)
  - ALOPECIA [None]
